FAERS Safety Report 6080376-2 (Version None)
Quarter: 2009Q1

REPORT INFORMATION
  Report Type: 
  Country: None (occurrence: None)
  Receive Date: 20090217
  Receipt Date: 20090210
  Transmission Date: 20090719
  Serious: Yes (Hospitalization)
  Sender: FDA-Public Use
  Company Number: CA-MERCK-0902CAN00034

PATIENT
  Age: 52 Year
  Sex: Female

DRUGS (4)
  1. JANUVIA [Suspect]
     Route: 048
     Dates: start: 20080401, end: 20090201
  2. METFORMIN [Concomitant]
     Route: 065
  3. ATORVASTATIN CALCIUM [Concomitant]
     Route: 065
  4. COZAAR [Suspect]
     Route: 048

REACTIONS (1)
  - PANCREATITIS [None]
